FAERS Safety Report 13455532 (Version 3)
Quarter: 2017Q3

REPORT INFORMATION
  Report Type: Spontaneous
  Country: US (occurrence: US)
  Receive Date: 20170418
  Receipt Date: 20170707
  Transmission Date: 20171127
  Serious: Yes (Other)
  Sender: FDA-Public Use
  Company Number: US-BAYER-2017-069774

PATIENT
  Sex: Female

DRUGS (4)
  1. OMNISCAN [Suspect]
     Active Substance: GADODIAMIDE
     Indication: PRODUCT USED FOR UNKNOWN INDICATION
     Dosage: UNK
     Route: 042
  2. GADAVIST [Suspect]
     Active Substance: GADOBUTROL
     Indication: NUCLEAR MAGNETIC RESONANCE IMAGING
  3. GADAVIST [Suspect]
     Active Substance: GADOBUTROL
     Indication: ANGIOGRAM
     Dosage: UNK UNK, ONCE
     Route: 042
  4. GADAVIST [Suspect]
     Active Substance: GADOBUTROL
     Indication: PRODUCT USED FOR UNKNOWN INDICATION

REACTIONS (11)
  - Gadolinium deposition disease [None]
  - Neurological symptom [None]
  - Pain [None]
  - Mental impairment [None]
  - Emotional distress [None]
  - Cognitive disorder [None]
  - Headache [None]
  - Hypoaesthesia [None]
  - Hyperkeratosis [None]
  - Hemiparesis [None]
  - Injury [None]
